FAERS Safety Report 7309387-3 (Version None)
Quarter: 2011Q1

REPORT INFORMATION
  Report Type: 
  Country: None (occurrence: None)
  Receive Date: 20110211
  Receipt Date: 20110127
  Transmission Date: 20110831
  Serious: Yes (Hospitalization, Other)
  Sender: FDA-Public Use
  Company Number: ACO_21635_2011

PATIENT
  Age: 52 Year
  Sex: Male

DRUGS (6)
  1. AMPYRA [Suspect]
     Indication: PRODUCT USED FOR UNKNOWN INDICATION
     Dosage: 10 MG, Q 12 HRS, ORAL
     Route: 048
     Dates: start: 20101001, end: 20110114
  2. GABAPENTIN [Concomitant]
  3. VITAMIN D [Concomitant]
  4. BACLOFEN [Concomitant]
  5. CALCIUM CARBONATE [Concomitant]
  6. PROPRANOLOL [Concomitant]

REACTIONS (1)
  - CONVULSION [None]
